FAERS Safety Report 17087229 (Version 2)
Quarter: 2020Q1

REPORT INFORMATION
  Report Type: Spontaneous
  Country: IT (occurrence: IT)
  Receive Date: 20191128
  Receipt Date: 20200106
  Transmission Date: 20200409
  Serious: Yes (Hospitalization)
  Sender: FDA-Public Use
  Company Number: IT-ACCORD-162481

PATIENT
  Age: 49 Year
  Sex: Male

DRUGS (2)
  1. GEMCITABINE ACCORD [Suspect]
     Active Substance: GEMCITABINE HYDROCHLORIDE
     Indication: PRODUCT USED FOR UNKNOWN INDICATION
     Dosage: STRENGTH:100 MG / ML
     Route: 042
     Dates: start: 20190822, end: 20191031
  2. CISPLATIN TEVA ITALY [Suspect]
     Active Substance: CISPLATIN
     Indication: BLADDER CANCER
     Dosage: STRENGTH: 1 MG / ML
     Route: 042
     Dates: start: 20190822, end: 20191017

REACTIONS (1)
  - Acute coronary syndrome [Recovered/Resolved]

NARRATIVE: CASE EVENT DATE: 20191103
